FAERS Safety Report 6204496-4 (Version None)
Quarter: 2009Q2

REPORT INFORMATION
  Report Type: 
  Country: None (occurrence: None)
  Receive Date: 20090527
  Receipt Date: 20090513
  Transmission Date: 20091009
  Serious: Yes (Hospitalization)
  Sender: FDA-Public Use
  Company Number: PHHY2009JP20380

PATIENT
  Sex: Male

DRUGS (5)
  1. TEGRETOL [Suspect]
     Dosage: 200 MG/DAY
     Route: 048
     Dates: start: 20090109
  2. FAMCICLOVIR [Concomitant]
     Indication: HERPES ZOSTER
     Dosage: 500 MG, TID
     Dates: start: 20090219, end: 20090225
  3. OXYCODONE HYDROCHLORIDE [Concomitant]
  4. IRSOGLADINE MALEATE [Concomitant]
  5. DICLOFENAC SODIUM [Concomitant]

REACTIONS (3)
  - BLISTER [None]
  - ERYTHEMA [None]
  - MALIGNANT NEOPLASM OF RENAL PELVIS [None]
